FAERS Safety Report 6969885-9 (Version None)
Quarter: 2010Q3

REPORT INFORMATION
  Report Type: 
  Country: None (occurrence: None)
  Receive Date: 20100908
  Receipt Date: 20100121
  Transmission Date: 20110219
  Serious: No
  Sender: FDA-Public Use
  Company Number: US-BAYER-200942757NA

PATIENT
  Age: 58 Year
  Sex: Male
  Weight: 69 kg

DRUGS (3)
  1. NEXAVAR [Suspect]
     Indication: HEPATIC NEOPLASM MALIGNANT
     Dosage: TOTAL DAILY DOSE: 400 MG  UNIT DOSE: 200 MG
     Route: 048
     Dates: start: 20091127, end: 20091201
  2. NEXAVAR [Suspect]
     Dosage: AS USED: 200-400 MG  UNIT DOSE: 200 MG
     Route: 048
     Dates: start: 20091201
  3. MEDICINAL MARIJUANA [Concomitant]

REACTIONS (12)
  - ALOPECIA [None]
  - ARTHRALGIA [None]
  - BLISTER [None]
  - BLOOD PRESSURE INCREASED [None]
  - DECREASED APPETITE [None]
  - GENITAL RASH [None]
  - HYPERKERATOSIS [None]
  - PAIN IN EXTREMITY [None]
  - PUNCTURE SITE HAEMORRHAGE [None]
  - RASH [None]
  - RASH PRURITIC [None]
  - SKIN EXFOLIATION [None]
